FAERS Safety Report 6631066-6 (Version None)
Quarter: 2010Q1

REPORT INFORMATION
  Report Type: 
  Country: None (occurrence: None)
  Receive Date: 20100309
  Receipt Date: 20100225
  Transmission Date: 20100710
  Serious: Yes (Other)
  Sender: FDA-Public Use
  Company Number: 220074J10USA

PATIENT
  Age: 12 Year
  Sex: Male

DRUGS (1)
  1. SAIZEN [Suspect]
     Indication: GROWTH HORMONE DEFICIENCY
     Dosage: 1.7 MG
     Dates: start: 20100101, end: 20100201

REACTIONS (3)
  - HEADACHE [None]
  - NO THERAPEUTIC RESPONSE [None]
  - SINUS DISORDER [None]
